FAERS Safety Report 6311631-6 (Version None)
Quarter: 2009Q3

REPORT INFORMATION
  Report Type: 
  Country: None (occurrence: None)
  Receive Date: 20090817
  Receipt Date: 20090810
  Transmission Date: 20100115
  Serious: Yes (Death, Hospitalization)
  Sender: FDA-Public Use
  Company Number: B0579053A

PATIENT
  Sex: Female

DRUGS (8)
  1. VALTREX [Suspect]
     Indication: DRUG USE FOR UNKNOWN INDICATION
     Dosage: 1000MG PER DAY
     Route: 048
     Dates: start: 20090516, end: 20090521
  2. BLOPRESS [Concomitant]
     Indication: HYPERTENSION
     Dosage: 4MG PER DAY
     Route: 048
     Dates: start: 20090501
  3. FUROSEMIDE [Concomitant]
     Dosage: 20MG PER DAY
     Route: 048
     Dates: start: 20090501
  4. ASPIRIN [Concomitant]
     Indication: ATRIAL FIBRILLATION
     Dosage: 100MG PER DAY
     Route: 048
     Dates: start: 20090501
  5. DIGOSIN [Concomitant]
     Dosage: .0625MG PER DAY
     Route: 048
     Dates: start: 20090501
  6. MUCOSTA [Concomitant]
     Indication: GASTRITIS
     Dosage: 900MG PER DAY
     Route: 048
     Dates: start: 20090501
  7. KREMEZIN [Concomitant]
     Indication: RENAL FAILURE CHRONIC
     Dosage: 18G PER DAY
     Route: 048
     Dates: start: 20090501
  8. KALIMATE [Concomitant]
     Dosage: 15G PER DAY
     Route: 048
     Dates: start: 20090501

REACTIONS (10)
  - BEDRIDDEN [None]
  - CEREBRAL HAEMORRHAGE [None]
  - DEATH [None]
  - DECREASED APPETITE [None]
  - DEPRESSED LEVEL OF CONSCIOUSNESS [None]
  - DISSEMINATED INTRAVASCULAR COAGULATION [None]
  - HAEMODIALYSIS [None]
  - INFECTION [None]
  - MELAENA [None]
  - RENAL FAILURE ACUTE [None]
